FAERS Safety Report 16978713 (Version 3)
Quarter: 2019Q4

REPORT INFORMATION
  Report Type: Spontaneous
  Country: US (occurrence: US)
  Receive Date: 20191031
  Receipt Date: 20191217
  Transmission Date: 20200122
  Serious: No
  Sender: FDA-Public Use
  Company Number: US-ALEMBIC PHARMACUETICALS LIMITED-2019SCAL000774

PATIENT

DRUGS (5)
  1. FISH OIL [Concomitant]
     Active Substance: FISH OIL
     Indication: BLOOD CHOLESTEROL
     Dosage: UNK
  2. MEPROBAMATE. [Suspect]
     Active Substance: MEPROBAMATE
     Indication: ANXIETY
     Dosage: 200 MILLIGRAM EVERY DAY AS NEEDED
     Route: 048
     Dates: start: 20191008, end: 20191008
  3. MEPROBAMATE. [Suspect]
     Active Substance: MEPROBAMATE
     Dosage: UNK
  4. ACETYLSALICYLIC ACID [Concomitant]
     Active Substance: ASPIRIN
     Indication: PRODUCT USED FOR UNKNOWN INDICATION
     Dosage: (LOW DOSE) ONCE A DAY
  5. NORVASC [Concomitant]
     Active Substance: AMLODIPINE BESYLATE
     Indication: HYPERTENSION
     Dosage: 2.5 MILLIGRAM
     Route: 048

REACTIONS (4)
  - Nausea [Not Recovered/Not Resolved]
  - Product odour abnormal [Unknown]
  - Product substitution issue [Unknown]
  - Product taste abnormal [Unknown]
